FAERS Safety Report 9491371 (Version 2)
Quarter: 2013Q3

REPORT INFORMATION
  Report Type: Report from Study
  Country: IT (occurrence: IT)
  Receive Date: 20130830
  Receipt Date: 20130830
  Transmission Date: 20140515
  Serious: Yes (Hospitalization, Other)
  Sender: FDA-Public Use
  Company Number: PHHO2010IT01752

PATIENT
  Age: 68 Year
  Sex: Male
  Weight: 87 kg

DRUGS (2)
  1. ALISKIREN [Suspect]
     Indication: CARDIOVASCULAR DISORDER
     Route: 048
     Dates: start: 20080806
  2. CLONIDINE [Suspect]
     Indication: HYPERTENSION

REACTIONS (7)
  - Diabetic nephropathy [Recovering/Resolving]
  - Concomitant disease progression [Recovering/Resolving]
  - Hypertensive crisis [Recovered/Resolved with Sequelae]
  - Oedema peripheral [Recovered/Resolved with Sequelae]
  - Nephroangiosclerosis [Recovering/Resolving]
  - Proteinuria [Recovering/Resolving]
  - Sinus bradycardia [Recovering/Resolving]
